FAERS Safety Report 4448800-6 (Version None)
Quarter: 2004Q3

REPORT INFORMATION
  Report Type: 
  Country: None (occurrence: None)
  Receive Date: 20040909
  Receipt Date: 20040825
  Transmission Date: 20050211
  Serious: No
  Sender: FDA-Public Use
  Company Number: 2004AP04525

PATIENT
  Age: 61 Year
  Sex: Male

DRUGS (2)
  1. XYLOCAINE [Suspect]
     Indication: LOCAL ANAESTHESIA
     Dates: start: 20040823, end: 20040823
  2. BUSCOPAN [Suspect]
     Dosage: 1 DF IM
     Route: 030
     Dates: start: 20040823, end: 20040823

REACTIONS (4)
  - BLOOD PRESSURE INCREASED [None]
  - CYANOSIS [None]
  - HYPERHIDROSIS [None]
  - RASH [None]
